FAERS Safety Report 7600278-7 (Version None)
Quarter: 2011Q2

REPORT INFORMATION
  Report Type: 
  Country: None (occurrence: None)
  Receive Date: 20110629
  Receipt Date: 20110602
  Transmission Date: 20111010
  Serious: Yes (Hospitalization)
  Sender: FDA-Public Use
  Company Number: 20110431

PATIENT
  Age: 77 Year
  Sex: Female

DRUGS (14)
  1. BOMETANIDE [Concomitant]
  2. CIMBALTA [Concomitant]
  3. VENOFER [Suspect]
     Indication: ANAEMIA
     Dosage: 300 MG IN 250 NS OVER 3 HOURS INTRAVENOUS DRIP
     Route: 041
     Dates: start: 20110601, end: 20110601
  4. ISMO [Concomitant]
  5. LASIX [Concomitant]
  6. NITROGLYCERIN [Concomitant]
  7. AMLODIPINE [Concomitant]
  8. DIOVAN HCT [Concomitant]
  9. PLAVIX [Concomitant]
  10. PRAVASTATIN SODIUM [Concomitant]
  11. VICODIN [Concomitant]
  12. ASPIRIN [Concomitant]
  13. LANTUS [Concomitant]
  14. PACKED RED BLOOD CELL INFUSION [Concomitant]

REACTIONS (7)
  - ANGINA PECTORIS [None]
  - CORONARY ARTERY DISEASE [None]
  - ASTHENIA [None]
  - BUNDLE BRANCH BLOCK [None]
  - TREMOR [None]
  - DRUG HYPERSENSITIVITY [None]
  - OXYGEN SATURATION DECREASED [None]
